FAERS Safety Report 5318801-4 (Version None)
Quarter: 2007Q2

REPORT INFORMATION
  Report Type: 
  Country: None (occurrence: None)
  Receive Date: 20070508
  Receipt Date: 20070507
  Transmission Date: 20071010
  Serious: Yes (Death)
  Sender: FDA-Public Use
  Company Number: CZ-BRISTOL-MYERS SQUIBB COMPANY-13770763

PATIENT
  Age: 52 Year
  Sex: Female

DRUGS (15)
  1. BLEOMYCIN SULFATE [Suspect]
     Indication: HODGKIN'S DISEASE
  2. ETOPOSIDE [Suspect]
     Indication: HODGKIN'S DISEASE
  3. VINCRISTINE SULFATE [Suspect]
     Indication: HODGKIN'S DISEASE
  4. DOXORUBICIN HCL [Suspect]
     Indication: HODGKIN'S DISEASE
  5. CYCLOPHOSPHAMIDE [Suspect]
     Indication: HODGKIN'S DISEASE
  6. ARANESP [Suspect]
     Indication: HODGKIN'S DISEASE
     Route: 058
  7. PROCARBAZINE [Suspect]
     Indication: HODGKIN'S DISEASE
  8. PREDNISONE TAB [Suspect]
     Indication: HODGKIN'S DISEASE
  9. GRANISETRON [Concomitant]
  10. CALCIUM CHLORIDE [Concomitant]
  11. FOLIC ACID [Concomitant]
  12. ALLOPURINOL [Concomitant]
  13. FLUCONAZOLE [Concomitant]
  14. TRIMETHOPRIM + SULFAMETHOXAZOLE [Concomitant]
  15. NEUPOGEN [Concomitant]

REACTIONS (1)
  - CARDIAC FAILURE [None]
